FAERS Safety Report 11086410 (Version 1)
Quarter: 2015Q2

REPORT INFORMATION
  Report Type: Spontaneous
  Country: JP (occurrence: JP)
  Receive Date: 20150504
  Receipt Date: 20150504
  Transmission Date: 20150821
  Serious: Yes (Hospitalization, Disabling)
  Sender: FDA-Public Use
  Company Number: JP-009507513-1410JPN014053

PATIENT
  Age: 77 Year
  Sex: Female
  Weight: 35 kg

DRUGS (2)
  1. FOSAMAX [Suspect]
     Active Substance: ALENDRONATE SODIUM
     Dosage: 35 MG, QW, DIVIDED DOSE FREQUENCY UNKNOWN
     Route: 048
     Dates: start: 200801, end: 201011
  2. FOSAMAX [Suspect]
     Active Substance: ALENDRONATE SODIUM
     Indication: OSTEOPOROSIS
     Dosage: 5 MG, QD
     Route: 048
     Dates: start: 200601, end: 200801

REACTIONS (4)
  - Osteomyelitis [Unknown]
  - Eyelid oedema [Unknown]
  - Osteonecrosis of jaw [Not Recovered/Not Resolved]
  - Acute sinusitis [Unknown]

NARRATIVE: CASE EVENT DATE: 201111
